FAERS Safety Report 8538475-9 (Version None)
Quarter: 2012Q3

REPORT INFORMATION
  Report Type: 
  Country: None (occurrence: None)
  Receive Date: 20120726
  Receipt Date: 20120718
  Transmission Date: 20120928
  Serious: No
  Sender: FDA-Public Use
  Company Number: US-009507513-1207USA008182

PATIENT

DRUGS (3)
  1. PROPECIA [Suspect]
     Indication: ALOPECIA
     Dosage: 1 MG, QD
     Route: 048
     Dates: end: 20120718
  2. LIPITOR [Concomitant]
  3. METFORMIN HYDROCHLORIDE [Concomitant]
     Dosage: UNK

REACTIONS (1)
  - TENDERNESS [None]
